FAERS Safety Report 13430927 (Version 1)
Quarter: 2017Q2

REPORT INFORMATION
  Report Type: Spontaneous
  Country: US (occurrence: US)
  Receive Date: 20170412
  Receipt Date: 20170412
  Transmission Date: 20170830
  Serious: Yes (Hospitalization, Other)
  Sender: FDA-Public Use
  Company Number: US-JNJFOC-NSADSS2002043611

PATIENT
  Age: 14 Day
  Sex: Male

DRUGS (1)
  1. LOPERAMIDE [Suspect]
     Active Substance: LOPERAMIDE
     Indication: DIARRHOEA
     Route: 048

REACTIONS (7)
  - Apnoea [Recovering/Resolving]
  - Miosis [Recovering/Resolving]
  - Dysphagia [Recovering/Resolving]
  - Stupor [Recovering/Resolving]
  - Tachycardia [Recovering/Resolving]
  - Acidosis [Recovering/Resolving]
  - Hypotension [Recovering/Resolving]
